FAERS Safety Report 4570572-5 (Version None)
Quarter: 2005Q1

REPORT INFORMATION
  Report Type: 
  Country: None (occurrence: None)
  Receive Date: 20050202
  Receipt Date: 20050127
  Transmission Date: 20050727
  Serious: Yes (Death, Hospitalization)
  Sender: FDA-Public Use
  Company Number: 2005-BP-01132RO

PATIENT
  Sex: Male

DRUGS (2)
  1. AZATHIOPRINE [Suspect]
     Indication: COLITIS ULCERATIVE
     Dosage: 50 MG/DAY(50 MG)
     Dates: start: 20001001
  2. PREDNISONE [Concomitant]

REACTIONS (7)
  - ABDOMINAL PAIN LOWER [None]
  - COLON CANCER [None]
  - LARGE INTESTINE PERFORATION [None]
  - MALIGNANT NEOPLASM PROGRESSION [None]
  - METASTASES TO BONE [None]
  - METASTASES TO LIVER [None]
  - METASTASES TO LYMPH NODES [None]
